FAERS Safety Report 6555365-1 (Version None)
Quarter: 2010Q1

REPORT INFORMATION
  Report Type: 
  Country: None (occurrence: None)
  Receive Date: 20100128
  Receipt Date: 20090723
  Transmission Date: 20100710
  Serious: No
  Sender: FDA-Public Use
  Company Number: A0798444A

PATIENT
  Age: 59 Year
  Sex: Female

DRUGS (1)
  1. WELLBUTRIN [Suspect]
     Indication: SEASONAL AFFECTIVE DISORDER
     Route: 048

REACTIONS (1)
  - MEDICATION RESIDUE [None]
